FAERS Safety Report 18963689 (Version 1)
Quarter: 2021Q1

REPORT INFORMATION
  Report Type: Spontaneous
  Country: FR (occurrence: FR)
  Receive Date: 20210303
  Receipt Date: 20210303
  Transmission Date: 20210420
  Serious: Yes (Hospitalization, Other)
  Sender: FDA-Public Use
  Company Number: FR-UCBSA-2021005427

PATIENT
  Sex: Female
  Weight: 72 kg

DRUGS (3)
  1. CIMZIA [Suspect]
     Active Substance: CERTOLIZUMAB PEGOL
     Indication: PSORIATIC ARTHROPATHY
     Dosage: 200 MILLIGRAM, EV 2 WEEKS(QOW)
     Route: 058
     Dates: start: 20200529, end: 202009
  2. MTX [METHOTREXATE] [Concomitant]
     Active Substance: METHOTREXATE SODIUM
  3. KETODERM [KETOCONAZOLE] [Concomitant]
     Indication: PRODUCT USED FOR UNKNOWN INDICATION

REACTIONS (12)
  - Ureterolithiasis [Unknown]
  - SARS-CoV-2 test negative [Unknown]
  - Sarcoidosis [Unknown]
  - Back pain [Unknown]
  - Hydronephrosis [Unknown]
  - Headache [Recovered/Resolved]
  - Hepatomegaly [Unknown]
  - Granuloma [Unknown]
  - Tinea versicolour [Recovering/Resolving]
  - Urethral disorder [Unknown]
  - Asthenia [Unknown]
  - Injection site pain [Unknown]
